FAERS Safety Report 7578581-9 (Version None)
Quarter: 2011Q2

REPORT INFORMATION
  Report Type: 
  Country: None (occurrence: None)
  Receive Date: 20110628
  Receipt Date: 20110617
  Transmission Date: 20111010
  Serious: Yes (Other)
  Sender: FDA-Public Use
  Company Number: US-PFIZER INC-2011133354

PATIENT
  Sex: Female
  Weight: 54.875 kg

DRUGS (2)
  1. ALPRAZOLAM [Suspect]
     Indication: ANXIETY
     Dosage: 2 MG, 1X/DAY
     Route: 048
     Dates: start: 20101114
  2. ALPRAZOLAM [Suspect]
     Indication: PANIC ATTACK
     Dosage: 1 MG, 1X/DAY
     Route: 048

REACTIONS (4)
  - GENERAL PHYSICAL HEALTH DETERIORATION [None]
  - HYPOAESTHESIA [None]
  - THINKING ABNORMAL [None]
  - CRYING [None]
